FAERS Safety Report 19069342 (Version 1)
Quarter: 2021Q1

REPORT INFORMATION
  Report Type: Other
  Country: US (occurrence: US)
  Receive Date: 20210329
  Receipt Date: 20210329
  Transmission Date: 20210420
  Serious: Yes (Other)
  Sender: FDA-Public Use
  Company Number: US-ROCHE-2703254

PATIENT
  Sex: Female

DRUGS (14)
  1. PROPRANOLOL [Concomitant]
     Active Substance: PROPRANOLOL HYDROCHLORIDE
     Dosage: 24 HR CAPSULE 80 MG 1 CAPSULE EXTENDED RELEASE 24 HR.
     Route: 048
  2. METFORMIN [Concomitant]
     Active Substance: METFORMIN HYDROCHLORIDE
     Dosage: 1 TABLET
     Route: 048
  3. VITAMIN D3 [Concomitant]
     Active Substance: CHOLECALCIFEROL
     Dosage: 2 CAPSULE
     Route: 048
  4. AMLODIPINE [Concomitant]
     Active Substance: AMLODIPINE BESYLATE
     Dosage: 1 TABLET
     Route: 048
  5. PEGASYS [Suspect]
     Active Substance: PEGINTERFERON ALFA-2A
     Indication: PULMONARY EMBOLISM
     Dosage: FORM OF ADMIN: 180 MCG/ML SOLUTION AND DOSE: 0.25 ML (45MCG)
     Route: 058
  6. XARELTO [Concomitant]
     Active Substance: RIVAROXABAN
     Dosage: 1 TABLET
     Route: 048
  7. LASIX [Concomitant]
     Active Substance: FUROSEMIDE
     Dosage: 1 TABLET
     Route: 048
  8. TYLENOL [Concomitant]
     Active Substance: ACETAMINOPHEN
     Dosage: 1?2 TABLET PO PRN
     Route: 048
  9. SILDENAFIL. [Concomitant]
     Active Substance: SILDENAFIL
     Dosage: 1 TABLET
     Route: 054
  10. ALLOPURINOL. [Concomitant]
     Active Substance: ALLOPURINOL
     Dosage: TAKE ONE TABLET BY MOUTH EVERY DAY.
     Route: 048
  11. NITROFURANTOIN. [Concomitant]
     Active Substance: NITROFURANTOIN
     Dosage: 1 CAPSULE
     Route: 048
  12. PEGASYS [Suspect]
     Active Substance: PEGINTERFERON ALFA-2A
     Indication: ENDOMETRIAL CANCER
  13. AMBRISENTAN [Concomitant]
     Active Substance: AMBRISENTAN
     Dosage: 1 TABLET
     Route: 048
  14. FERROUS SULFATE. [Concomitant]
     Active Substance: FERROUS SULFATE
     Dosage: 325 MG (65 MG IRON) 1 TABLET
     Route: 048

REACTIONS (3)
  - Off label use [Unknown]
  - Endometrial cancer [Unknown]
  - Intentional product use issue [Unknown]
